FAERS Safety Report 8957023 (Version 2)
Quarter: 2013Q2

REPORT INFORMATION
  Report Type: Spontaneous
  Country: US (occurrence: US)
  Receive Date: 20121210
  Receipt Date: 20130501
  Transmission Date: 20140414
  Serious: No
  Sender: FDA-Public Use
  Company Number: US-009507513-1212USA000413

PATIENT
  Age: 69 Year
  Sex: Male
  Weight: 90.7 kg

DRUGS (6)
  1. CLARITIN [Suspect]
     Indication: HYPERSENSITIVITY
     Dosage: 10 MG, ONCE
     Route: 048
     Dates: start: 20121107
  2. CLARITIN [Suspect]
     Indication: MEDICAL OBSERVATION
     Dosage: 10 MG, ONCE
     Route: 048
     Dates: start: 20121108
  3. CLARITIN [Suspect]
     Dosage: 10 MG, QD
     Route: 048
     Dates: start: 2000
  4. CRESTOR [Concomitant]
     Indication: BLOOD CHOLESTEROL INCREASED
     Dosage: UNK, UNKNOWN
  5. BAYER ASPIRIN [Concomitant]
     Indication: PRODUCT USED FOR UNKNOWN INDICATION
     Dosage: UNK, UNKNOWN
  6. FLONASE [Concomitant]
     Indication: PRODUCT USED FOR UNKNOWN INDICATION
     Dosage: UNK, UNKNOWN

REACTIONS (2)
  - Drug ineffective [Unknown]
  - Overdose [Unknown]
